FAERS Safety Report 6361661-3 (Version None)
Quarter: 2009Q3

REPORT INFORMATION
  Report Type: 
  Country: None (occurrence: None)
  Receive Date: 20090918
  Receipt Date: 20090903
  Transmission Date: 20100115
  Serious: Yes (Hospitalization)
  Sender: FDA-Public Use
  Company Number: NO-MERCK-0909NOR00002

PATIENT
  Age: 87 Year
  Sex: Female

DRUGS (8)
  1. COZAAR [Suspect]
     Route: 048
     Dates: start: 20081201, end: 20081218
  2. FUROSEMIDE [Suspect]
     Indication: CARDIAC FAILURE
     Route: 048
     Dates: start: 20081201
  3. IBUPROFEN [Suspect]
     Indication: PODAGRA
     Route: 048
     Dates: start: 20080901, end: 20081220
  4. NAPROXEN [Suspect]
     Indication: PODAGRA
     Route: 048
     Dates: start: 19970101
  5. TERBUTALINE SULFATE [Concomitant]
  6. AMLODIPINE [Concomitant]
     Indication: HYPERTENSION
     Route: 048
     Dates: start: 20081218
  7. METOPROLOL [Concomitant]
     Route: 048
  8. RANITIDINE [Concomitant]
     Route: 048

REACTIONS (2)
  - FLUID RETENTION [None]
  - RENAL FAILURE ACUTE [None]
